FAERS Safety Report 8415575-5 (Version None)
Quarter: 2012Q2

REPORT INFORMATION
  Report Type: 
  Country: None (occurrence: None)
  Receive Date: 20120606
  Receipt Date: 20120601
  Transmission Date: 20120825
  Serious: Yes (Hospitalization)
  Sender: FDA-Public Use
  Company Number: US-BAYER-2012-055119

PATIENT
  Age: 29 Year
  Sex: Female
  Weight: 132.43 kg

DRUGS (8)
  1. YAZ [Suspect]
     Indication: CONTRACEPTION
  2. SINGULAIR [Concomitant]
     Indication: ASTHMA
     Dosage: UNK
     Dates: start: 20081101
  3. METHIMAZOLE [Concomitant]
     Indication: BASEDOW'S DISEASE
     Dosage: UNK
     Dates: start: 20081101
  4. TYLENOL W/ CODEINE NO. 3 [Concomitant]
  5. YASMIN [Suspect]
  6. TORADOL [Concomitant]
     Indication: PAIN
  7. YAZ [Suspect]
     Indication: POLYCYSTIC OVARIES
  8. ALBUTEROL [Concomitant]
     Indication: BRONCHITIS
     Dosage: UNK
     Dates: start: 20081102

REACTIONS (2)
  - DEEP VEIN THROMBOSIS [None]
  - PULMONARY EMBOLISM [None]
